FAERS Safety Report 9115275 (Version 2)
Quarter: 2013Q1

REPORT INFORMATION
  Report Type: Report from Study
  Country: US (occurrence: US)
  Receive Date: 20130225
  Receipt Date: 20130311
  Transmission Date: 20140127
  Serious: Yes (Hospitalization, Disabling)
  Sender: FDA-Public Use
  Company Number: US-ROCHE-1194553

PATIENT
  Age: 59 Year
  Sex: Female
  Weight: 95.79 kg

DRUGS (19)
  1. ACTEMRA [Suspect]
     Indication: RHEUMATOID ARTHRITIS
     Dosage: LAST DOSE: 8MG/KG; LAST DOSE OF TOCILIZUMAB RECEIVED
     Route: 042
     Dates: start: 201104, end: 20130102
  2. SULFASALAZINE [Concomitant]
     Indication: RHEUMATOID ARTHRITIS
     Route: 048
  3. MELOXICAM [Concomitant]
     Indication: RHEUMATOID ARTHRITIS
     Route: 048
  4. CYMBALTA [Concomitant]
     Route: 065
  5. LYRICA [Concomitant]
     Indication: FIBROMYALGIA
     Route: 048
  6. LYRICA [Concomitant]
     Route: 048
  7. OMEPRAZOLE [Concomitant]
     Route: 048
  8. METOPROLOL SUCCINATE [Concomitant]
     Route: 048
  9. PRAVASTATIN [Concomitant]
     Route: 048
  10. SYNTHROID [Concomitant]
     Route: 048
  11. AMBIEN [Concomitant]
     Route: 048
  12. RELPAX [Concomitant]
     Route: 065
  13. CITRACAL [Concomitant]
     Route: 065
  14. BIOTIN [Concomitant]
  15. ACYCLOVIR [Concomitant]
     Route: 065
  16. VOLTAREN GEL [Concomitant]
     Route: 065
  17. ACETAMINOPHEN/CODEINE [Concomitant]
     Route: 065
  18. SALINE SOLUTION [Concomitant]
     Dosage: 100 CC
     Route: 065
  19. BENADRYL [Concomitant]
     Route: 065

REACTIONS (4)
  - Fatigue [Recovered/Resolved]
  - Somnolence [Recovered/Resolved]
  - Loss of consciousness [Recovered/Resolved]
  - Blood pressure decreased [Recovered/Resolved]
